FAERS Safety Report 7447519-7 (Version None)
Quarter: 2011Q2

REPORT INFORMATION
  Report Type: 
  Country: None (occurrence: None)
  Receive Date: 20110429
  Receipt Date: 20110216
  Transmission Date: 20111010
  Serious: No
  Sender: FDA-Public Use
  Company Number: US-ASTRAZENECA-2011SE04367

PATIENT
  Age: 44 Year
  Sex: Female

DRUGS (5)
  1. NEXIUM [Suspect]
     Indication: GASTROOESOPHAGEAL REFLUX DISEASE
     Route: 048
  2. XANAX [Concomitant]
  3. LYRICA [Concomitant]
  4. VYTORIN [Concomitant]
  5. EFFEXOR [Concomitant]

REACTIONS (2)
  - ACCIDENT [None]
  - BACK INJURY [None]
